FAERS Safety Report 10591129 (Version 1)
Quarter: 2014Q4

REPORT INFORMATION
  Report Type: Spontaneous
  Country: US (occurrence: None)
  Receive Date: 20141112
  Receipt Date: 20141112
  Transmission Date: 20150529
  Serious: Yes (Other)
  Sender: FDA-Public Use
  Company Number: US-2013-11632

PATIENT
  Sex: Male
  Weight: 120 kg

DRUGS (2)
  1. SAMSCA [Suspect]
     Active Substance: TOLVAPTAN
     Indication: HYPONATRAEMIA
     Dosage: 15 MG MILLIGRAM(S), SINGLE
     Dates: start: 20130811, end: 20130811
  2. LASIX [Concomitant]
     Active Substance: FUROSEMIDE

REACTIONS (1)
  - Rapid correction of hyponatraemia [None]

NARRATIVE: CASE EVENT DATE: 20130811
